FAERS Safety Report 6577255-0 (Version None)
Quarter: 2010Q1

REPORT INFORMATION
  Report Type: 
  Country: None (occurrence: None)
  Receive Date: 20100210
  Receipt Date: 20100126
  Transmission Date: 20100710
  Serious: Yes (Hospitalization)
  Sender: FDA-Public Use
  Company Number: IT-PFIZER INC-2010011493

PATIENT
  Sex: Female

DRUGS (2)
  1. DOXAZOSIN MESILATE [Suspect]
     Dosage: UNK
  2. SERTRALINE HCL [Suspect]

REACTIONS (2)
  - PRESYNCOPE [None]
  - VOMITING [None]
